FAERS Safety Report 8282769-1 (Version None)
Quarter: 2012Q2

REPORT INFORMATION
  Report Type: 
  Country: None (occurrence: None)
  Receive Date: 20120413
  Receipt Date: 20120409
  Transmission Date: 20120825
  Serious: Yes (Hospitalization)
  Sender: FDA-Public Use
  Company Number: US-PFIZER INC-2012077214

PATIENT
  Age: 87 Year
  Sex: Female

DRUGS (1)
  1. MECLOZINE HYDROCHLORIDE [Suspect]
     Indication: INNER EAR DISORDER
     Dosage: UNK

REACTIONS (4)
  - FALL [None]
  - DIZZINESS [None]
  - HIP FRACTURE [None]
  - DRUG INEFFECTIVE [None]
